FAERS Safety Report 6935901-3 (Version None)
Quarter: 2010Q3

REPORT INFORMATION
  Report Type: 
  Country: None (occurrence: None)
  Receive Date: 20100819
  Receipt Date: 20100819
  Transmission Date: 20110219
  Serious: No
  Sender: FDA-Public Use
  Company Number: None

PATIENT
  Age: 68 Year
  Sex: Male
  Weight: 75 kg

DRUGS (1)
  1. CIPROFLOXACIN [Suspect]
     Dosage: 500 MG BID PO
     Route: 048
     Dates: start: 20100618, end: 20100621

REACTIONS (6)
  - DRUG ERUPTION [None]
  - DRUG INEFFECTIVE [None]
  - ECCHYMOSIS [None]
  - PETECHIAE [None]
  - RASH PAPULAR [None]
  - RASH PRURITIC [None]
